FAERS Safety Report 10787635 (Version 1)
Quarter: 2015Q1

REPORT INFORMATION
  Report Type: Spontaneous
  Country: US (occurrence: US)
  Receive Date: 20150212
  Receipt Date: 20150212
  Transmission Date: 20150721
  Serious: Yes (Hospitalization)
  Sender: FDA-Public Use
  Company Number: US-BEH-2015048492

PATIENT
  Age: 74 Year
  Sex: Female
  Weight: 45 kg

DRUGS (21)
  1. EPIPEN [Concomitant]
     Active Substance: EPINEPHRINE
  2. ALLEGRA-D [Concomitant]
     Active Substance: FEXOFENADINE\PSEUDOEPHEDRINE
  3. CALCIUM+D [Concomitant]
  4. TRAMADOL [Concomitant]
     Active Substance: TRAMADOL
  5. LEVOTHYROXINE [Concomitant]
     Active Substance: LEVOTHYROXINE
  6. SIMVASTATIN. [Concomitant]
     Active Substance: SIMVASTATIN
  7. ALPRAZOLAM. [Concomitant]
     Active Substance: ALPRAZOLAM
  8. QUINAPRIL [Concomitant]
     Active Substance: QUINAPRIL\QUINAPRIL HYDROCHLORIDE
  9. HIZENTRA [Suspect]
     Active Substance: HUMAN IMMUNOGLOBULIN G
     Indication: IMMUNODEFICIENCY COMMON VARIABLE
     Route: 058
  10. CALCIUM [Concomitant]
     Active Substance: CALCIUM
  11. MULTIVITAMIN [Concomitant]
     Active Substance: VITAMINS
  12. ASPIRIN. [Concomitant]
     Active Substance: ASPIRIN
  13. HIZENTRA [Suspect]
     Active Substance: HUMAN IMMUNOGLOBULIN G
     Route: 058
  14. ACETAMINOPHEN. [Concomitant]
     Active Substance: ACETAMINOPHEN
  15. LIDOCAINE/PRILOCAINE [Concomitant]
  16. VITAMIN D3 [Concomitant]
     Active Substance: CHOLECALCIFEROL
  17. ADVIL [Concomitant]
     Active Substance: IBUPROFEN
  18. CARVEDILOL. [Concomitant]
     Active Substance: CARVEDILOL
  19. DIPHENHYDRAMINE [Concomitant]
     Active Substance: DIPHENHYDRAMINE
  20. CENTRUM SILVER [Concomitant]
     Active Substance: VITAMINS
  21. PLAVIX [Concomitant]
     Active Substance: CLOPIDOGREL BISULFATE

REACTIONS (3)
  - Gallbladder operation [Unknown]
  - Blood pressure systolic increased [Unknown]
  - Transient ischaemic attack [Unknown]

NARRATIVE: CASE EVENT DATE: 201412
